FAERS Safety Report 5991705-X (Version None)
Quarter: 2008Q4

REPORT INFORMATION
  Report Type: 
  Country: None (occurrence: None)
  Receive Date: 20081211
  Receipt Date: 20080505
  Transmission Date: 20090506
  Serious: No
  Sender: FDA-Public Use
  Company Number: US-AMGEN-KDL277224

PATIENT
  Sex: Female

DRUGS (4)
  1. ENBREL [Suspect]
     Indication: RHEUMATOID ARTHRITIS
     Route: 058
     Dates: start: 20070620
  2. METHOTREXATE [Concomitant]
     Route: 048
     Dates: start: 20070401
  3. FOLIC ACID [Concomitant]
     Dates: start: 20070401
  4. CRESTOR [Concomitant]

REACTIONS (8)
  - INJECTION SITE ERYTHEMA [None]
  - INJECTION SITE PRURITUS [None]
  - INJECTION SITE SWELLING [None]
  - LATEX ALLERGY [None]
  - PAIN [None]
  - RASH GENERALISED [None]
  - RASH PRURITIC [None]
  - SECRETION DISCHARGE [None]
